FAERS Safety Report 21915806 (Version 2)
Quarter: 2023Q1

REPORT INFORMATION
  Report Type: Report from Study
  Country: US (occurrence: US)
  Receive Date: 20230126
  Receipt Date: 20230329
  Transmission Date: 20230418
  Serious: No
  Sender: FDA-Public Use
  Company Number: US-ABBVIE-4244865

PATIENT
  Age: 74 Year
  Sex: Female
  Weight: 68 kg

DRUGS (7)
  1. HUMIRA [Suspect]
     Active Substance: ADALIMUMAB
     Indication: Uveitis
     Dosage: FORM STRENGTH: 40 MG
     Route: 058
     Dates: start: 20220614
  2. HUMIRA [Suspect]
     Active Substance: ADALIMUMAB
     Dosage: LAST ADMIN DATE- JUN 2022
     Route: 058
     Dates: start: 20220607
  3. OMEPRAZOLE [Concomitant]
     Active Substance: OMEPRAZOLE
     Indication: Gastrooesophageal reflux disease
     Dosage: FORM STRENGTH: 40 MG?STOP DATE TEXT: TAPERING
     Route: 048
     Dates: start: 202212
  4. FLONASE [Concomitant]
     Active Substance: FLUTICASONE PROPIONATE
     Indication: Product used for unknown indication
  5. HERBALS\TURMERIC [Concomitant]
     Active Substance: HERBALS\TURMERIC
     Indication: Antioxidant therapy
     Dosage: FORM STRENGTH- 123 MILLIGRAM?FREQUENCY TEXT: EVERY OTHER DAY
     Route: 048
  6. FOSAMAX [Concomitant]
     Active Substance: ALENDRONATE SODIUM
     Indication: Osteoporosis
     Route: 048
     Dates: start: 201904
  7. ALLEGRA [Concomitant]
     Active Substance: FEXOFENADINE HYDROCHLORIDE
     Indication: Injection site hypersensitivity
     Dosage: FREQUENCY TEXT: AS NEEDED
     Route: 048
     Dates: start: 202212

REACTIONS (6)
  - Injection site swelling [Recovered/Resolved]
  - Throat irritation [Recovered/Resolved with Sequelae]
  - Injection site bruising [Recovered/Resolved]
  - COVID-19 [Unknown]
  - Gastrooesophageal reflux disease [Unknown]
  - Tonsillar disorder [Unknown]

NARRATIVE: CASE EVENT DATE: 20220818
